FAERS Safety Report 15662287 (Version 5)
Quarter: 2019Q3

REPORT INFORMATION
  Report Type: Spontaneous
  Country: US (occurrence: US)
  Receive Date: 20181127
  Receipt Date: 20190910
  Transmission Date: 20191004
  Serious: Yes (Other)
  Sender: FDA-Public Use
  Company Number: US-PFIZER INC-2018487112

PATIENT
  Age: 60 Year
  Sex: Male

DRUGS (1)
  1. XELJANZ XR [Suspect]
     Active Substance: TOFACITINIB CITRATE
     Indication: RHEUMATOID ARTHRITIS
     Dosage: 11 MG, 1X/DAY
     Route: 048
     Dates: start: 20150829, end: 201905

REACTIONS (5)
  - Sensitivity to weather change [Unknown]
  - Rheumatoid arthritis [Not Recovered/Not Resolved]
  - Skin laceration [Unknown]
  - Pain [Unknown]
  - Arthropathy [Unknown]
